FAERS Safety Report 4604828-4 (Version None)
Quarter: 2005Q2

REPORT INFORMATION
  Report Type: 
  Country: None (occurrence: None)
  Receive Date: 20050224
  Receipt Date: 20041117
  Transmission Date: 20051028
  Serious: Yes (Hospitalization)
  Sender: FDA-Public Use
  Company Number: 04P-163-0280827-00

PATIENT
  Age: 45 Year
  Sex: Male

DRUGS (2)
  1. DEPAKOTE ER [Suspect]
     Dosage: 500 MG
  2. HYDROCHLOROTHIAZIDE [Concomitant]

REACTIONS (1)
  - PANCREATITIS [None]
